FAERS Safety Report 8846946 (Version 2)
Quarter: 2012Q4

REPORT INFORMATION
  Report Type: 
  Country: BR (occurrence: BR)
  Receive Date: 20121018
  Receipt Date: 20121023
  Transmission Date: 20130627
  Serious: Yes (Other)
  Sender: FDA-Public Use
  Company Number: BR-PFIZER INC-2012227863

PATIENT
  Age: 47 Year
  Sex: Female
  Weight: 70 kg

DRUGS (8)
  1. CHAMPIX [Suspect]
     Indication: SMOKING CESSATION THERAPY
     Dosage: 0.5 mg, 1x/day
     Route: 048
     Dates: start: 201209, end: 2012
  2. CHAMPIX [Suspect]
     Dosage: 2 tablets of strength 0.5 mg, 1 in the morning and the other at night
     Route: 048
     Dates: start: 2012, end: 2012
  3. CHAMPIX [Suspect]
     Dosage: 1 tablet strength 0.5 mg in the morning
     Route: 048
     Dates: start: 2012, end: 2012
  4. CHAMPIX [Suspect]
     Dosage: 2 tablets (strength 0.5 mg), one tablet in the morning and another at night
     Route: 048
     Dates: start: 2012
  5. DIAZEPAM [Concomitant]
     Indication: ANXIOLYTIC THERAPY
     Dosage: 20 mg, 1x/day
  6. FLUOXETINE [Concomitant]
     Indication: ANTIDEPRESSANT THERAPY
     Dosage: 20 mg, 1x/day
  7. HYDROCHLOROTHIAZIDE [Concomitant]
     Indication: BLOOD PRESSURE
     Dosage: 50 mg, 1x/day
     Dates: start: 2002
  8. HYDROCHLOROTHIAZIDE [Concomitant]
     Indication: HYPERTENSION

REACTIONS (18)
  - Lung neoplasm malignant [Unknown]
  - Dyspnoea [Unknown]
  - Nervousness [Not Recovered/Not Resolved]
  - Anxiety [Not Recovered/Not Resolved]
  - Dizziness [Not Recovered/Not Resolved]
  - Dry mouth [Not Recovered/Not Resolved]
  - Insomnia [Not Recovered/Not Resolved]
  - Tremor [Not Recovered/Not Resolved]
  - Agitation [Unknown]
  - Cough [Unknown]
  - Urinary incontinence [Unknown]
  - Nausea [Not Recovered/Not Resolved]
  - Decreased appetite [Not Recovered/Not Resolved]
  - Food aversion [Not Recovered/Not Resolved]
  - Abdominal discomfort [Not Recovered/Not Resolved]
  - Skin exfoliation [Not Recovered/Not Resolved]
  - Crying [Unknown]
  - Pain [Unknown]
